FAERS Safety Report 17147268 (Version 2)
Quarter: 2020Q1

REPORT INFORMATION
  Report Type: Spontaneous
  Country: BR (occurrence: BR)
  Receive Date: 20191212
  Receipt Date: 20200306
  Transmission Date: 20200409
  Serious: Yes (Other)
  Sender: FDA-Public Use
  Company Number: BR-GLAXOSMITHKLINE-BR2019GSK223129

PATIENT
  Age: 60 Year
  Sex: Female

DRUGS (3)
  1. NIQUITIN [Suspect]
     Active Substance: NICOTINE
     Dosage: UNK, 7 MG
     Route: 062
     Dates: end: 202001
  2. NIQUITIN [Suspect]
     Active Substance: NICOTINE
     Indication: SMOKING CESSATION THERAPY
     Dosage: 1 DF, QD, 21 MG
     Route: 062
     Dates: start: 20191115
  3. NIQUITIN [Suspect]
     Active Substance: NICOTINE
     Dosage: UNK, 14 MG
     Route: 062

REACTIONS (9)
  - Skin sensitisation [Unknown]
  - Application site pruritus [Unknown]
  - Dyspnoea at rest [Not Recovered/Not Resolved]
  - Medication error [Unknown]
  - Discomfort [Unknown]
  - Application site erythema [Unknown]
  - Anxiety [Not Recovered/Not Resolved]
  - Application site bruise [Unknown]
  - Obstructive airways disorder [Unknown]

NARRATIVE: CASE EVENT DATE: 20191115
